FAERS Safety Report 11845958 (Version 1)
Quarter: 2015Q4

REPORT INFORMATION
  Report Type: Spontaneous
  Country: US (occurrence: US)
  Receive Date: 20151217
  Receipt Date: 20151217
  Transmission Date: 20160305
  Serious: Yes (Death)
  Sender: FDA-Public Use
  Company Number: US-BAYER-2015-486386

PATIENT
  Age: 20 Year
  Sex: Female

DRUGS (9)
  1. HEROIN [Suspect]
     Active Substance: DIACETYLMORPHINE
  2. CYCLOBENZAPRINE [Suspect]
     Active Substance: CYCLOBENZAPRINE
  3. ROMILAR [Suspect]
     Active Substance: DEXTROMETHORPHAN HYDROBROMIDE
     Dosage: UNK
     Route: 055
  4. OXYCODONE [Suspect]
     Active Substance: OXYCODONE
  5. DILTIAZEM [Suspect]
     Active Substance: DILTIAZEM
  6. ROMILAR [Suspect]
     Active Substance: DEXTROMETHORPHAN HYDROBROMIDE
     Route: 048
  7. CODEINE [Suspect]
     Active Substance: CODEINE
  8. HYDROCODONE [Suspect]
     Active Substance: HYDROCODONE
  9. CITALOPRAM [Suspect]
     Active Substance: CITALOPRAM HYDROBROMIDE

REACTIONS (1)
  - Drug abuse [Fatal]
